FAERS Safety Report 5004189-5 (Version None)
Quarter: 2006Q2

REPORT INFORMATION
  Report Type: 
  Country: None (occurrence: None)
  Receive Date: 20060517
  Receipt Date: 20060508
  Transmission Date: 20061013
  Serious: Yes (Other)
  Sender: FDA-Public Use
  Company Number: PHBS2006IT07038

PATIENT

DRUGS (1)
  1. VOLTAREN [Suspect]
     Route: 064

REACTIONS (2)
  - CEREBRAL INFARCTION [None]
  - DRUG EXPOSURE DURING PREGNANCY [None]
